FAERS Safety Report 8737497 (Version 3)
Quarter: 2013Q2

REPORT INFORMATION
  Report Type: Report from Study
  Country: JP (occurrence: JP)
  Receive Date: 20120822
  Receipt Date: 20130620
  Transmission Date: 20140414
  Serious: Yes (Hospitalization, Other)
  Sender: FDA-Public Use
  Company Number: JP-009507513-1208JPN000351

PATIENT
  Age: 66 Year
  Sex: Male
  Weight: 60 kg

DRUGS (13)
  1. PEGINTRON [Suspect]
     Indication: CHRONIC HEPATITIS C
     Dosage: 1.5 MICROGRAM PER KILOGRAM, UNK
     Route: 058
     Dates: start: 20120604, end: 20120702
  2. REBETOL [Suspect]
     Indication: CHRONIC HEPATITIS C
     Dosage: 600 MG, QD
     Route: 048
     Dates: start: 20120604, end: 20120707
  3. TELAVIC [Suspect]
     Indication: CHRONIC HEPATITIS C
     Dosage: 2250 MG, QD
     Route: 048
     Dates: start: 20120604, end: 20120617
  4. TELAVIC [Suspect]
     Dosage: 2000 MG, QD
     Route: 048
     Dates: start: 20120618, end: 20120618
  5. TELAVIC [Suspect]
     Dosage: 1500 MG, QD
     Route: 048
     Dates: start: 20120619, end: 20120707
  6. ZYLORIC [Suspect]
     Dosage: 200 MG, QD
     Route: 048
     Dates: start: 20120604, end: 20120605
  7. ZYLORIC [Suspect]
     Dosage: 300 MG, QD
     Route: 048
     Dates: start: 20120606, end: 20120707
  8. JUVELA [Concomitant]
     Dosage: UNK, APPLIED TO SORE AREAS OF THE TOES AND SOLES
     Route: 061
     Dates: start: 20120713, end: 20120713
  9. LIDOMEX [Concomitant]
     Dosage: UNKNOWN, ON THE FACE AND NECK
     Route: 061
     Dates: start: 20120713, end: 20120713
  10. TALION (BEPOTASTINE BESYLATE) [Concomitant]
     Dosage: 20 MG, QD
     Route: 048
     Dates: start: 20120713, end: 20120713
  11. RIKKUNSHI-TO [Concomitant]
     Indication: PROPHYLAXIS
     Dosage: 3 DF, UNK
     Route: 048
     Dates: start: 20120604, end: 20120707
  12. TAKEPRON [Concomitant]
     Indication: PROPHYLAXIS
     Dosage: 15 MG, QD
     Route: 048
     Dates: start: 20120604, end: 20120707
  13. VOLTAREN [Concomitant]
     Indication: PROPHYLAXIS
     Dosage: 25 MG, PRN
     Route: 054
     Dates: start: 20120618, end: 20120702

REACTIONS (4)
  - Drug eruption [Recovering/Resolving]
  - Drug eruption [Not Recovered/Not Resolved]
  - Renal impairment [Recovering/Resolving]
  - Pancreatitis [Recovering/Resolving]
